FAERS Safety Report 5899573-1 (Version None)
Quarter: 2008Q3

REPORT INFORMATION
  Report Type: 
  Country: None (occurrence: None)
  Receive Date: 20080926
  Receipt Date: 20080919
  Transmission Date: 20090109
  Serious: Yes (Other)
  Sender: FDA-Public Use
  Company Number: PHHY2008IT22265

PATIENT
  Age: 35 Year
  Sex: Male

DRUGS (1)
  1. FAMVIR [Suspect]
     Indication: HERPES ZOSTER
     Dosage: 250 MG, TID
     Route: 048
     Dates: start: 20080914, end: 20080915

REACTIONS (5)
  - ANGIOEDEMA [None]
  - HYPERPYREXIA [None]
  - OEDEMA [None]
  - PRURITUS [None]
  - URTICARIA [None]
